FAERS Safety Report 8964505 (Version 1)
Quarter: 2012Q4

REPORT INFORMATION
  Report Type: 
  Country: DE (occurrence: DE)
  Receive Date: 20121214
  Receipt Date: 20121214
  Transmission Date: 20130627
  Serious: Yes (Congenital Anomaly, Other)
  Sender: FDA-Public Use
  Company Number: DE-009507513-1212DEU004919

PATIENT
  Age: 3 Day
  Sex: Male
  Weight: 3.8 kg

DRUGS (1)
  1. JANUMET [Suspect]
     Indication: TYPE 2 DIABETES MELLITUS
     Dosage: 100[mg/d(50-0-50)]metformin, sitagliptin in unknown dose
     Route: 064
     Dates: start: 20100228, end: 20101208

REACTIONS (4)
  - Hypospadias [Unknown]
  - Hypoglycaemia neonatal [Recovered/Resolved]
  - Speech disorder developmental [Unknown]
  - Foetal exposure during pregnancy [Unknown]
